FAERS Safety Report 15932609 (Version 4)
Quarter: 2019Q2

REPORT INFORMATION
  Report Type: Spontaneous
  Country: US (occurrence: US)
  Receive Date: 20190207
  Receipt Date: 20190409
  Transmission Date: 20190711
  Serious: Yes (Other)
  Sender: FDA-Public Use
  Company Number: US-ASTRAZENECA-2018SF33412

PATIENT
  Age: 29547 Day
  Sex: Female

DRUGS (40)
  1. DONEPEZIL. [Concomitant]
     Active Substance: DONEPEZIL
     Dosage: TAKE 1 TABLET BY MOUTH AT BEDTIME AS DIRECTED.
  2. KLOR-CON [Concomitant]
     Active Substance: POTASSIUM CHLORIDE
     Dosage: TAKE 1 TABLET BY MOUTH EVERY OTHER DAY AS DIRECTED
  3. CLARITHROMYCIN. [Concomitant]
     Active Substance: CLARITHROMYCIN
     Dates: start: 20070711
  4. CARBIDA [Concomitant]
  5. NEXIUM [Suspect]
     Active Substance: ESOMEPRAZOLE MAGNESIUM
     Indication: GASTROOESOPHAGEAL REFLUX DISEASE
     Route: 048
     Dates: start: 20070216
  6. PREDNISONE. [Concomitant]
     Active Substance: PREDNISONE
  7. NEXIUM [Suspect]
     Active Substance: ESOMEPRAZOLE MAGNESIUM
     Indication: GASTROOESOPHAGEAL REFLUX DISEASE
     Route: 048
     Dates: start: 2001, end: 2017
  8. DRONABINOL. [Concomitant]
     Active Substance: DRONABINOL
     Dosage: TAKE 1 CAPSULE BY MOUTH TWICE A DAY ONE HOUR BEFORE MEALS
  9. FUROSEMIDE. [Concomitant]
     Active Substance: FUROSEMIDE
     Dosage: TAKE 1 TABLET BY RNOUTH ONCE 8 DAY AS DIRECTED. TAKE ONE TABLET BY MOUTH EVERY DAY AS DIRECTED
  10. GEMFIBROZIL. [Concomitant]
     Active Substance: GEMFIBROZIL
     Dosage: TAKE 1 TWICE A DAY
  11. LEVAQUIN [Concomitant]
     Active Substance: LEVOFLOXACIN
     Dosage: TAKA 1 TABLET BY MOUTH ONCE A DAY AS DIRECTED
     Dates: start: 20070122
  12. PREDNISONE. [Concomitant]
     Active Substance: PREDNISONE
     Dates: start: 19970703
  13. CEFUROXIME AXETIL. [Concomitant]
     Active Substance: CEFUROXIME AXETIL
     Dates: start: 20091103
  14. ASPIRIN. [Concomitant]
     Active Substance: ASPIRIN
     Indication: ANTIPLATELET THERAPY
     Dates: start: 2016
  15. VITAMIN D2 [Concomitant]
     Active Substance: ERGOCALCIFEROL
     Indication: SUPPLEMENTATION THERAPY
     Dates: start: 2016
  16. NEXIUM [Suspect]
     Active Substance: ESOMEPRAZOLE MAGNESIUM
     Indication: GASTROOESOPHAGEAL REFLUX DISEASE
     Route: 048
     Dates: start: 2007, end: 2015
  17. ALBUTEROL SULFATE. [Concomitant]
     Active Substance: ALBUTEROL SULFATE
     Dosage: INHALE AS DIRECTED EVERY HOUR HOURS AS NEEDED
  18. GABAPENTIN. [Concomitant]
     Active Substance: GABAPENTIN
     Dosage: TAKE 1 THREE TIMES A DAY
  19. MOBIC [Concomitant]
     Active Substance: MELOXICAM
     Dosage: TAKA 1 TABLET BY MOUTH ONCE A DAY AS DIRECTED
  20. NABUMETONE. [Concomitant]
     Active Substance: NABUMETONE
     Dates: start: 20060531
  21. DALIRESP [Concomitant]
     Active Substance: ROFLUMILAST
     Dosage: TAKE 1 TABLET BY MOUTH ONCE A DAY AS DIRECTED.
  22. CRESTOR [Concomitant]
     Active Substance: ROSUVASTATIN CALCIUM
     Dates: start: 20080528
  23. BENZONATATE. [Concomitant]
     Active Substance: BENZONATATE
     Dates: start: 20060531
  24. OMEPRAZOLE. [Suspect]
     Active Substance: OMEPRAZOLE
     Indication: GASTROOESOPHAGEAL REFLUX DISEASE
     Route: 048
     Dates: start: 2011, end: 2014
  25. CELEXA [Concomitant]
     Active Substance: CITALOPRAM HYDROBROMIDE
     Dosage: CITALOPRAM
     Dates: start: 20071204
  26. CLARITIN [Concomitant]
     Active Substance: LORATADINE
     Dosage: TAKE 1 TABLET BY MOUTH ONCE A DAY AS DIRECTED.
  27. ALENDRONATE [Concomitant]
     Active Substance: ALENDRONATE SODIUM
     Dates: start: 20080410
  28. AVELOX [Concomitant]
     Active Substance: MOXIFLOXACIN HYDROCHLORIDE
     Dates: start: 20060826
  29. PREDNISONE. [Concomitant]
     Active Substance: PREDNISONE
  30. CELEXA [Concomitant]
     Active Substance: CITALOPRAM HYDROBROMIDE
     Dosage: TAKE 1 TABLET BY MOUTH ONCE 8 DAY AS DIRECTED.
  31. LORAZEPAM. [Concomitant]
     Active Substance: LORAZEPAM
     Dates: start: 20060531
  32. CARBIDA/LEVO [Concomitant]
     Dates: start: 20080227
  33. ENALAPRIL [Concomitant]
     Active Substance: ENALAPRIL
  34. PREVACID [Suspect]
     Active Substance: LANSOPRAZOLE
     Indication: GASTROOESOPHAGEAL REFLUX DISEASE
     Route: 065
     Dates: start: 2001, end: 2017
  35. PREVACID [Suspect]
     Active Substance: LANSOPRAZOLE
     Indication: GASTROOESOPHAGEAL REFLUX DISEASE
     Route: 048
     Dates: start: 20011107
  36. PANTOPRAZOLE [Suspect]
     Active Substance: PANTOPRAZOLE
     Indication: GASTROOESOPHAGEAL REFLUX DISEASE
     Route: 065
     Dates: start: 2014, end: 2017
  37. AZITHROMYCIN ANHYDROUS. [Concomitant]
     Active Substance: AZITHROMYCIN ANHYDROUS
     Dosage: TAKE 1 TABLET BY MOUTH EVERY OTHER DAY AS DIRECTED
  38. POTASSIUM [Concomitant]
     Active Substance: POTASSIUM
     Indication: SUPPLEMENTATION THERAPY
     Dates: start: 2016
  39. CITALOPRAM [Concomitant]
     Active Substance: CITALOPRAM HYDROBROMIDE
  40. NABUMETONE. [Concomitant]
     Active Substance: NABUMETONE

REACTIONS (5)
  - Nephrogenic anaemia [Unknown]
  - Acute kidney injury [Not Recovered/Not Resolved]
  - Renal failure [Unknown]
  - Renal injury [Unknown]
  - Chronic kidney disease [Not Recovered/Not Resolved]

NARRATIVE: CASE EVENT DATE: 20160802
